FAERS Safety Report 23631995 (Version 1)
Quarter: 2024Q1

REPORT INFORMATION
  Report Type: Report from Study
  Country: DO (occurrence: DO)
  Receive Date: 20240314
  Receipt Date: 20240314
  Transmission Date: 20240410
  Serious: Yes (Other)
  Sender: FDA-Public Use
  Company Number: DO-002147023-NVSC2022DO171654

PATIENT
  Age: 37 Year
  Sex: Female
  Weight: 95.24 kg

DRUGS (9)
  1. KESIMPTA [Suspect]
     Active Substance: OFATUMUMAB
     Indication: Relapsing-remitting multiple sclerosis
     Dosage: 20 MG, QMO (1 YEAR AND 8 MONTHS AGO)
     Route: 058
     Dates: start: 20220704
  2. KESIMPTA [Suspect]
     Active Substance: OFATUMUMAB
     Indication: Multiple sclerosis
     Dosage: 20 MG, QW, FIRST INDUCTION DOSE
     Route: 058
     Dates: start: 20220725
  3. KESIMPTA [Suspect]
     Active Substance: OFATUMUMAB
     Dosage: 20 MG, SECOND INDUCTION DOSE
     Route: 058
  4. KESIMPTA [Suspect]
     Active Substance: OFATUMUMAB
     Dosage: 20 MG, QD
     Route: 058
  5. KESIMPTA [Suspect]
     Active Substance: OFATUMUMAB
     Dosage: 20 MG, QMO
     Route: 058
     Dates: end: 20230425
  6. KESIMPTA [Suspect]
     Active Substance: OFATUMUMAB
     Dosage: 1 DOSAGE FORM, QMO
     Route: 065
  7. CORENTEL H [Concomitant]
     Indication: Hypertension
     Dosage: UNK (5/12.5)
     Route: 065
  8. CORENTEL H [Concomitant]
     Dosage: 5.5 MG, QD
     Route: 065
  9. BISOPROLOL FUMARATE [Concomitant]
     Active Substance: BISOPROLOL FUMARATE
     Indication: Product used for unknown indication
     Dosage: 5.5 MG, QD
     Route: 065

REACTIONS (17)
  - Multiple sclerosis [Unknown]
  - Influenza like illness [Not Recovered/Not Resolved]
  - Malaise [Recovering/Resolving]
  - Pyrexia [Recovering/Resolving]
  - Pain [Recovering/Resolving]
  - Back pain [Unknown]
  - Headache [Recovering/Resolving]
  - Fatigue [Unknown]
  - Polymenorrhoea [Recovering/Resolving]
  - Migraine [Unknown]
  - Nausea [Unknown]
  - Head discomfort [Unknown]
  - Lumbar hernia [Unknown]
  - Decreased appetite [Recovering/Resolving]
  - Depression [Unknown]
  - Crying [Recovering/Resolving]
  - Mood altered [Unknown]

NARRATIVE: CASE EVENT DATE: 20220725
